FAERS Safety Report 6024089-1 (Version None)
Quarter: 2008Q4

REPORT INFORMATION
  Report Type: 
  Country: None (occurrence: None)
  Receive Date: 20081230
  Receipt Date: 20081217
  Transmission Date: 20090506
  Serious: Yes (Other)
  Sender: FDA-Public Use
  Company Number: JP-GENENTECH-274556

PATIENT
  Age: 59 Year
  Sex: Female

DRUGS (4)
  1. AVASTIN [Suspect]
     Indication: RECTAL CANCER
     Dosage: 10 MG/KG, Q2W
     Route: 042
     Dates: start: 20081215
  2. ELPLAT [Concomitant]
     Indication: RECTAL CANCER
     Dosage: UNK
     Dates: start: 20081215
  3. FLUOROURACIL [Concomitant]
     Indication: RECTAL CANCER
  4. LEUCOVORIN CALCIUM [Concomitant]
     Indication: RECTAL CANCER

REACTIONS (2)
  - BLOOD LACTATE DEHYDROGENASE INCREASED [None]
  - PYREXIA [None]
